FAERS Safety Report 6838340-9 (Version None)
Quarter: 2010Q3

REPORT INFORMATION
  Report Type: 
  Country: None (occurrence: None)
  Receive Date: 20100713
  Receipt Date: 20070604
  Transmission Date: 20110219
  Serious: Yes (Other)
  Sender: FDA-Public Use
  Company Number: US-PFIZER INC-2007046879

PATIENT
  Sex: Female
  Weight: 89.5 kg

DRUGS (3)
  1. CHANTIX [Suspect]
     Indication: EX-TOBACCO USER
     Dates: start: 20070424
  2. PREMARIN [Concomitant]
  3. OTHER RESPIRATORY SYSTEM PRODUCTS [Concomitant]
     Indication: ASTHMA

REACTIONS (4)
  - NAUSEA [None]
  - SLEEP DISORDER [None]
  - SWELLING [None]
  - WEIGHT INCREASED [None]
